FAERS Safety Report 20195035 (Version 3)
Quarter: 2021Q4

REPORT INFORMATION
  Report Type: Spontaneous
  Country: PT (occurrence: PT)
  Receive Date: 20211216
  Receipt Date: 20211229
  Transmission Date: 20220303
  Serious: Yes (Hospitalization, Other)
  Sender: FDA-Public Use
  Company Number: PT-MYLANLABS-2021M1079131

PATIENT
  Age: 61 Year
  Sex: Male

DRUGS (2)
  1. ANAGRELIDE [Suspect]
     Active Substance: ANAGRELIDE
     Indication: Myeloproliferative neoplasm
     Dosage: 1 MILLIGRAM, QD
  2. ANAGRELIDE [Suspect]
     Active Substance: ANAGRELIDE
     Dosage: UNK
     Route: 065

REACTIONS (7)
  - Congestive cardiomyopathy [Recovered/Resolved]
  - Toxicity to various agents [Recovering/Resolving]
  - Off label use [Recovering/Resolving]
  - Dyspnoea [Recovering/Resolving]
  - Orthopnoea [Recovering/Resolving]
  - Dyspnoea paroxysmal nocturnal [Recovering/Resolving]
  - Left ventricular dysfunction [Recovered/Resolved]
